FAERS Safety Report 14917366 (Version 1)
Quarter: 2018Q2

REPORT INFORMATION
  Report Type: Report from Study
  Country: US (occurrence: US)
  Receive Date: 20180521
  Receipt Date: 20180521
  Transmission Date: 20180711
  Serious: Yes (Hospitalization)
  Sender: FDA-Public Use
  Company Number: US-ROCHE-2124397

PATIENT
  Age: 70 Year
  Sex: Male

DRUGS (1)
  1. TRASTUZUMAB EMTANSINE [Suspect]
     Active Substance: ADO-TRASTUZUMAB EMTANSINE
     Indication: NEOPLASM MALIGNANT
     Dosage: DOSE AND FREQUENCY AS PER PROTOCOL?LAST DOSE OF TREATMENT PRIOR TO SERIOUS ADVERSE EVENT 18/APR/2018
     Route: 042
     Dates: start: 20180418

REACTIONS (1)
  - Muscular weakness [Unknown]

NARRATIVE: CASE EVENT DATE: 20180508
